FAERS Safety Report 14798307 (Version 1)
Quarter: 2018Q2

REPORT INFORMATION
  Report Type: Spontaneous
  Country: US (occurrence: US)
  Receive Date: 20180424
  Receipt Date: 20180424
  Transmission Date: 20180711
  Serious: No
  Sender: FDA-Public Use
  Company Number: US-JNJFOC-20180404378

PATIENT
  Age: 60 Year
  Sex: Female
  Weight: 58.97 kg

DRUGS (12)
  1. WOMENS ROGAINE UNSCENTED [Suspect]
     Active Substance: MINOXIDIL
     Route: 061
  2. TURMERIC [Concomitant]
     Active Substance: HERBALS\TURMERIC
     Indication: GENERAL PHYSICAL CONDITION
     Route: 065
  3. VITAMIN D [Concomitant]
     Active Substance: CHOLECALCIFEROL
     Indication: GENERAL PHYSICAL CONDITION
     Route: 065
  4. MULTIVITAMINS [Concomitant]
     Active Substance: VITAMINS
     Indication: GENERAL PHYSICAL CONDITION
     Route: 065
  5. BIOTIN [Concomitant]
     Active Substance: BIOTIN
     Indication: GENERAL PHYSICAL CONDITION
     Route: 065
  6. MAGNESIUM [Concomitant]
     Active Substance: MAGNESIUM
     Indication: GENERAL PHYSICAL CONDITION
     Route: 065
  7. VITAMIN E [Concomitant]
     Active Substance: .ALPHA.-TOCOPHEROL
     Indication: GENERAL PHYSICAL CONDITION
     Route: 065
  8. ZINC. [Concomitant]
     Active Substance: ZINC
     Indication: GENERAL PHYSICAL CONDITION
     Route: 065
  9. CALCIUM [Concomitant]
     Active Substance: CALCIUM
     Indication: GENERAL PHYSICAL CONDITION
     Route: 065
  10. VITAMINE A [Concomitant]
     Active Substance: RETINOL
     Indication: GENERAL PHYSICAL CONDITION
     Route: 065
  11. VITAMIN B12 [Concomitant]
     Active Substance: CYANOCOBALAMIN
     Indication: GENERAL PHYSICAL CONDITION
     Route: 065
  12. WOMENS ROGAINE UNSCENTED [Suspect]
     Active Substance: MINOXIDIL
     Indication: ALOPECIA
     Dosage: HALF CAPFUL AMOUNT
     Route: 061
     Dates: start: 2017

REACTIONS (1)
  - Alopecia [Not Recovered/Not Resolved]

NARRATIVE: CASE EVENT DATE: 2018
